FAERS Safety Report 9787252 (Version 3)
Quarter: 2014Q2

REPORT INFORMATION
  Report Type: Spontaneous
  Country: CA (occurrence: CA)
  Receive Date: 20131230
  Receipt Date: 20140506
  Transmission Date: 20141212
  Serious: Yes (Death, Hospitalization, Other)
  Sender: FDA-Public Use
  Company Number: CA-ROCHE-1326679

PATIENT
  Age: 82 Year
  Sex: Male

DRUGS (8)
  1. XOLAIR [Suspect]
     Indication: ASTHMA
     Route: 058
     Dates: start: 20100521
  2. XOLAIR [Suspect]
     Route: 058
     Dates: start: 20130906
  3. XOLAIR [Suspect]
     Route: 058
     Dates: start: 20140404, end: 20140404
  4. SPIRIVA [Concomitant]
  5. ADVAIR [Concomitant]
  6. SALBUTAMOL/SALBUTAMOL SULFATE [Concomitant]
  7. NASONEX [Concomitant]
  8. SINGULAIR [Concomitant]

REACTIONS (8)
  - Death [Fatal]
  - Fall [Unknown]
  - Head injury [Unknown]
  - Joint dislocation [Unknown]
  - Wrist fracture [Unknown]
  - Pneumonia [Unknown]
  - Parkinson^s disease [Unknown]
  - Body temperature decreased [Unknown]
